FAERS Safety Report 14747401 (Version 1)
Quarter: 2018Q2

REPORT INFORMATION
  Report Type: Spontaneous
  Country: GB (occurrence: GB)
  Receive Date: 20180411
  Receipt Date: 20180411
  Transmission Date: 20180711
  Serious: Yes (Disabling)
  Sender: FDA-Public Use
  Company Number: GB-PFIZER INC-2018145292

PATIENT
  Age: 77 Year
  Sex: Female
  Weight: 58 kg

DRUGS (14)
  1. TRAMADOL. [Concomitant]
     Active Substance: TRAMADOL
     Dosage: 1 -2 TO BE TAKEN FOUR TIMES DAILY AS NEEDED
     Dates: start: 20180125, end: 20180222
  2. PANTOPRAZOLE [Concomitant]
     Active Substance: PANTOPRAZOLE
     Dosage: 1 DF, 1X/DAY
     Dates: start: 20170131
  3. QUININE [Concomitant]
     Active Substance: QUININE
     Dosage: 1 DF, DAILY
     Dates: start: 20171221, end: 20171222
  4. EPADERM [Concomitant]
     Active Substance: MINERAL OIL\PETROLATUM\WAX, EMULSIFYING
     Dosage: APPLY AS MOISTURISER
     Dates: start: 20160126
  5. LEVOTHYROXINE. [Concomitant]
     Active Substance: LEVOTHYROXINE
     Dosage: 1 DF, DAILY
     Dates: start: 20171025
  6. NORMACOL [Concomitant]
     Active Substance: HERBALS\KARAYA GUM
     Dosage: 1-2 DAILY
     Dates: start: 20160126
  7. GABAPENTIN. [Suspect]
     Active Substance: GABAPENTIN
     Dosage: UNK
     Route: 002
     Dates: start: 20171226, end: 20180131
  8. MOMETASONE [Concomitant]
     Active Substance: MOMETASONE
     Dosage: 2 DF, DAILY
     Dates: start: 20171025
  9. ESTRADIOL. [Concomitant]
     Active Substance: ESTRADIOL
     Dosage: USE AS DIRECTED
     Dates: start: 20170131
  10. SYSTANE (HYPROMELLOSE 2910 (4000 MPA.S)) [Concomitant]
     Active Substance: HYPROMELLOSE 2910 (4000 MPA.S)
     Dosage: USE AS DIRECTED
     Dates: start: 20161220
  11. EMOLLIN [Concomitant]
     Dosage: USE AS DIRECTED
     Dates: start: 20151116
  12. DERMOL /01330701/ [Concomitant]
     Dosage: USE AS SOAP AND MOISTURISER
     Dates: start: 20151116
  13. GABAPENTIN. [Suspect]
     Active Substance: GABAPENTIN
     Dosage: UNK
     Dates: start: 20170808
  14. DICLOFENAC DIETHYLAMINE [Concomitant]
     Active Substance: DICLOFENAC DIETHYLAMINE
     Dosage: 3 DF, DAILY
     Dates: start: 20170208

REACTIONS (1)
  - Somnambulism [Recovered/Resolved]

NARRATIVE: CASE EVENT DATE: 20171226
